FAERS Safety Report 12596913 (Version 13)
Quarter: 2020Q4

REPORT INFORMATION
  Report Type: Spontaneous
  Country: DK (occurrence: DK)
  Receive Date: 20160727
  Receipt Date: 20201109
  Transmission Date: 20210113
  Serious: Yes (Disabling, Other)
  Sender: FDA-Public Use
  Company Number: PHHY2016DK101396

PATIENT
  Age: 76 Year
  Sex: Female
  Weight: 53 kg

DRUGS (7)
  1. UNIKALK BASIC [Concomitant]
     Indication: PRODUCT USED FOR UNKNOWN INDICATION
     Dosage: 400 MG, BID
     Route: 065
  2. CLORIOCARD [Concomitant]
     Active Substance: CLOPIDOGREL HYDROCHLORIDE
     Indication: THROMBOSIS PROPHYLAXIS
  3. CLORIOCARD [Concomitant]
     Active Substance: CLOPIDOGREL HYDROCHLORIDE
     Indication: COAGULOPATHY
     Dosage: 75 MG, QD
     Route: 065
     Dates: start: 20140211
  4. MAGNESIUM [Concomitant]
     Active Substance: MAGNESIUM
     Indication: PRODUCT USED FOR UNKNOWN INDICATION
     Dosage: EVERY MORNING
     Route: 065
  5. VITAMIN E [Concomitant]
     Active Substance: .ALPHA.-TOCOPHEROL
     Indication: PRODUCT USED FOR UNKNOWN INDICATION
     Dosage: UNK UNK, QD
     Route: 065
  6. ACLASTA [Suspect]
     Active Substance: ZOLEDRONIC ACID
     Indication: OSTEOPOROSIS
     Dosage: 1 DF, Q12MO
     Route: 065
     Dates: start: 20160107
  7. MOVICOL [Concomitant]
     Active Substance: POLYETHYLENE GLYCOL 3350\POTASSIUM CHLORIDE\SODIUM BICARBONATE\SODIUM CHLORIDE
     Indication: PRODUCT USED FOR UNKNOWN INDICATION
     Route: 065

REACTIONS (33)
  - Mucosal dryness [Recovered/Resolved]
  - Joint swelling [Unknown]
  - Muscular weakness [Not Recovered/Not Resolved]
  - Muscle spasms [Not Recovered/Not Resolved]
  - Seizure [Recovered/Resolved]
  - Burning sensation [Recovering/Resolving]
  - Headache [Not Recovered/Not Resolved]
  - Mucosal haemorrhage [Recovered/Resolved]
  - Oedema [Not Recovered/Not Resolved]
  - Blood creatine phosphokinase increased [Unknown]
  - Paraesthesia [Not Recovered/Not Resolved]
  - Myalgia [Not Recovered/Not Resolved]
  - Sjogren^s syndrome [Unknown]
  - Hyponatraemia [Unknown]
  - Arthralgia [Not Recovered/Not Resolved]
  - Ulcerative keratitis [Unknown]
  - Poor quality sleep [Not Recovered/Not Resolved]
  - Restless legs syndrome [Not Recovered/Not Resolved]
  - Feeling abnormal [Unknown]
  - Balance disorder [Unknown]
  - Grip strength decreased [Unknown]
  - Plantar fasciitis [Unknown]
  - Disturbance in attention [Unknown]
  - Pain in extremity [Not Recovered/Not Resolved]
  - Conjunctivitis [Recovered/Resolved]
  - Corneal oedema [Recovered/Resolved]
  - Influenza like illness [Unknown]
  - Hypoacusis [Unknown]
  - Visual impairment [Recovered/Resolved]
  - Pain [Not Recovered/Not Resolved]
  - Hypertension [Unknown]
  - Peripheral swelling [Unknown]
  - Dyspnoea [Unknown]

NARRATIVE: CASE EVENT DATE: 20160219
